FAERS Safety Report 17404101 (Version 1)
Quarter: 2020Q1

REPORT INFORMATION
  Report Type: Spontaneous
  Country: US (occurrence: US)
  Receive Date: 20200211
  Receipt Date: 20200211
  Transmission Date: 20200409
  Serious: Yes (Hospitalization, Other)
  Sender: FDA-Public Use
  Company Number: US-FRESENIUS KABI-FK202001281

PATIENT
  Age: 67 Year
  Sex: Male
  Weight: 93.4 kg

DRUGS (12)
  1. FLUDARABINE [Suspect]
     Active Substance: FLUDARABINE PHOSPHATE
     Indication: CHEMOTHERAPY
     Dosage: TOTAL DAILY DOSE 62.5 MG
     Route: 042
     Dates: start: 20180126, end: 20180128
  2. TOCILIZUMAB. [Concomitant]
     Active Substance: TOCILIZUMAB
     Route: 065
     Dates: start: 20180208, end: 20180208
  3. TOCILIZUMAB. [Concomitant]
     Active Substance: TOCILIZUMAB
     Route: 065
     Dates: start: 20180210, end: 20180210
  4. LISINOPRIL. [Concomitant]
     Active Substance: LISINOPRIL
     Indication: PRODUCT USED FOR UNKNOWN INDICATION
     Route: 065
     Dates: end: 20180206
  5. LISOCABTAGENE MARALEUCEL. [Suspect]
     Active Substance: LISOCABTAGENE MARALEUCEL
     Indication: CHRONIC LYMPHOCYTIC LEUKAEMIA
     Dosage: 5 X10^7 CELLS, SINGLE, ENTIRE DOSE
     Route: 042
     Dates: start: 20180131, end: 20180131
  6. DOPAMINE [Concomitant]
     Active Substance: DOPAMINE HYDROCHLORIDE
     Indication: PYREXIA
     Route: 065
  7. TOCILIZUMAB. [Concomitant]
     Active Substance: TOCILIZUMAB
     Indication: PRODUCT USED FOR UNKNOWN INDICATION
     Route: 065
     Dates: start: 20180207, end: 20180207
  8. ALLOPURINOL. [Concomitant]
     Active Substance: ALLOPURINOL
     Indication: PRODUCT USED FOR UNKNOWN INDICATION
     Route: 065
     Dates: start: 20180125, end: 20180223
  9. CYCLOPHOSPHAMIDE. [Suspect]
     Active Substance: CYCLOPHOSPHAMIDE
     Indication: CHEMOTHERAPY
     Dosage: TOTAL DAILY DOSE 628 MG
     Route: 042
     Dates: start: 20180126, end: 20180128
  10. PETHIDINE HYDROCHLORIDE [Concomitant]
     Active Substance: MEPERIDINE HYDROCHLORIDE
     Indication: PRODUCT USED FOR UNKNOWN INDICATION
     Route: 065
     Dates: start: 20180206, end: 20180206
  11. HYDROCORTISONE SODIUM SUCCINATE [Concomitant]
     Active Substance: HYDROCORTISONE SODIUM SUCCINATE
     Indication: PRODUCT USED FOR UNKNOWN INDICATION
     Route: 042
     Dates: start: 20180207, end: 20180207
  12. HYDROCORTISONE SODIUM SUCCINATE [Concomitant]
     Active Substance: HYDROCORTISONE SODIUM SUCCINATE
     Route: 042
     Dates: start: 20180208, end: 20180208

REACTIONS (2)
  - Encephalopathy [Recovered/Resolved]
  - Acute kidney injury [Recovered/Resolved]

NARRATIVE: CASE EVENT DATE: 20180210
